FAERS Safety Report 9722726 (Version 4)
Quarter: 2014Q2

REPORT INFORMATION
  Report Type: Spontaneous
  Country: US (occurrence: US)
  Receive Date: 20131202
  Receipt Date: 20140429
  Transmission Date: 20141212
  Serious: No
  Sender: FDA-Public Use
  Company Number: US-PFIZER INC-2013340521

PATIENT
  Age: 46 Year
  Sex: Male
  Weight: 88.44 kg

DRUGS (7)
  1. SUTENT [Suspect]
     Indication: NEOPLASM MALIGNANT
     Dosage: 37.5 MG, UNK
     Dates: start: 20131113, end: 20140318
  2. HYDRALAZINE [Concomitant]
     Dosage: UNK
  3. NORVASC [Concomitant]
     Dosage: UNK
  4. LORTAB [Concomitant]
     Dosage: UNK
  5. MORPHINE [Concomitant]
     Dosage: UNK
  6. ZOFRAN [Concomitant]
     Dosage: UNK
  7. PHENERGAN [Concomitant]
     Dosage: UNK

REACTIONS (3)
  - Blood pressure increased [Unknown]
  - Disease progression [Unknown]
  - Neoplasm malignant [Unknown]
